FAERS Safety Report 12048073 (Version 1)
Quarter: 2016Q1

REPORT INFORMATION
  Report Type: Report from Study
  Country: US (occurrence: US)
  Receive Date: 20160208
  Receipt Date: 20160208
  Transmission Date: 20160526
  Serious: No
  Sender: FDA-Public Use
  Company Number: US-ABBVIE-15P-163-1385262-00

PATIENT
  Sex: Male

DRUGS (1)
  1. HUMIRA [Suspect]
     Active Substance: ADALIMUMAB
     Indication: COLITIS ULCERATIVE
     Route: 065
     Dates: start: 20150131

REACTIONS (4)
  - Abscess [Unknown]
  - Groin pain [Not Recovered/Not Resolved]
  - Sinusitis [Recovered/Resolved]
  - Musculoskeletal pain [Not Recovered/Not Resolved]
